FAERS Safety Report 21477818 (Version 1)
Quarter: 2022Q4

REPORT INFORMATION
  Report Type: Spontaneous
  Country: JP (occurrence: JP)
  Receive Date: 20221019
  Receipt Date: 20221019
  Transmission Date: 20230113
  Serious: Yes (Life-Threatening, Hospitalization)
  Sender: FDA-Public Use
  Company Number: JP-BAYER-2021-209090

PATIENT
  Age: 38 Year
  Sex: Male
  Weight: 63 kg

DRUGS (3)
  1. STIVARGA [Suspect]
     Active Substance: REGORAFENIB
     Indication: Colon cancer recurrent
     Dosage: DAILY DOSE 120MG FOR 3 CONSECUTIVE WEEKS, 1 WEEK OFF
     Route: 048
     Dates: start: 20210610, end: 20210630
  2. STIVARGA [Suspect]
     Active Substance: REGORAFENIB
     Indication: Colon cancer
     Dosage: DAILY DOSE 80MG FOR 3 CONSECUTIVE WEEKS, 1 WEEK OFF
     Route: 048
     Dates: start: 20210707, end: 20210720
  3. STIVARGA [Suspect]
     Active Substance: REGORAFENIB
     Indication: Metastases to liver
     Dosage: DAILY DOSE 80MG
     Route: 048
     Dates: start: 20210805, end: 20210822

REACTIONS (4)
  - Acute hepatic failure [Recovered/Resolved with Sequelae]
  - Hepatic encephalopathy [None]
  - Jaundice [Recovered/Resolved with Sequelae]
  - Altered state of consciousness [Recovered/Resolved with Sequelae]

NARRATIVE: CASE EVENT DATE: 20210823
